FAERS Safety Report 10610767 (Version 1)
Quarter: 2014Q4

REPORT INFORMATION
  Report Type: Report from Study
  Country: BR (occurrence: BR)
  Receive Date: 20141126
  Receipt Date: 20141126
  Transmission Date: 20150529
  Serious: Yes (Other)
  Sender: FDA-Public Use
  Company Number: CHPA2014BR015691

PATIENT
  Age: 71 Year
  Sex: Female
  Weight: 48 kg

DRUGS (1)
  1. BUFFERIN [Suspect]
     Active Substance: ASPIRIN
     Indication: ANTIPLATELET THERAPY
     Dosage: 81 MG, QD
     Route: 048
     Dates: start: 2000

REACTIONS (6)
  - Gastrointestinal disorder [Recovering/Resolving]
  - Sinusitis [Recovering/Resolving]
  - Upper limb fracture [Recovering/Resolving]
  - Rhinitis [Not Recovered/Not Resolved]
  - Influenza [Recovering/Resolving]
  - Gastric disorder [Recovering/Resolving]

NARRATIVE: CASE EVENT DATE: 20141008
